FAERS Safety Report 4310033-1 (Version None)
Quarter: 2004Q1

REPORT INFORMATION
  Report Type: 
  Country: None (occurrence: None)
  Receive Date: 20040301
  Receipt Date: 20031110
  Transmission Date: 20041129
  Serious: No
  Sender: FDA-Public Use
  Company Number: WAES0308USA01449

PATIENT
  Age: 72 Year
  Sex: Female

DRUGS (10)
  1. ZETIA [Suspect]
     Indication: HYPERCHOLESTEROLAEMIA
     Dosage: 10 MG/DAILY/PO
     Route: 048
     Dates: start: 20030806, end: 20030812
  2. ASACOL [Concomitant]
  3. PLAVIX [Concomitant]
  4. PRAVACHOL [Concomitant]
  5. ZOLOFT [Concomitant]
  6. FOLIC ACID [Concomitant]
  7. LISINOPRIL [Concomitant]
  8. METOPROLOL [Concomitant]
  9. PREDNISONE [Concomitant]
  10. VITAMINS (UNSPECIFIED) [Concomitant]

REACTIONS (4)
  - ERYTHEMA [None]
  - FEELING HOT [None]
  - RASH [None]
  - SWELLING FACE [None]
